FAERS Safety Report 5180921-5 (Version None)
Quarter: 2006Q4

REPORT INFORMATION
  Report Type: 
  Country: None (occurrence: None)
  Receive Date: 20061218
  Receipt Date: 20061218
  Transmission Date: 20070319
  Serious: Yes (Hospitalization)
  Sender: FDA-Public Use
  Company Number: None

PATIENT
  Sex: Male
  Weight: 28 kg

DRUGS (6)
  1. GEODON [Suspect]
     Indication: BIPOLAR DISORDER
     Dates: start: 20061001, end: 20061101
  2. GEODON [Suspect]
     Indication: OPPOSITIONAL DEFIANT DISORDER
     Dates: start: 20061001, end: 20061101
  3. SEROQUEL [Suspect]
     Indication: BIPOLAR DISORDER
     Dates: start: 20061001, end: 20061101
  4. SEROQUEL [Suspect]
     Indication: OPPOSITIONAL DEFIANT DISORDER
     Dates: start: 20061001, end: 20061101
  5. LITHIUM CARBONATE [Concomitant]
  6. VALPROIC ACID [Concomitant]

REACTIONS (2)
  - NEUROLEPTIC MALIGNANT SYNDROME [None]
  - PHARYNGOLARYNGEAL PAIN [None]
